FAERS Safety Report 19693844 (Version 4)
Quarter: 2022Q4

REPORT INFORMATION
  Report Type: Spontaneous
  Country: US (occurrence: US)
  Receive Date: 20210812
  Receipt Date: 20221202
  Transmission Date: 20230113
  Serious: No
  Sender: FDA-Public Use
  Company Number: US-PFIZER INC-2021894319

PATIENT
  Age: 69 Year
  Sex: Female
  Weight: 88.435 kg

DRUGS (2)
  1. PREMARIN [Suspect]
     Active Substance: ESTROGENS, CONJUGATED
     Indication: Vulvovaginal burning sensation
     Dosage: 0.5 G, 2X/WEEK
     Route: 067
     Dates: start: 2019
  2. PREMARIN [Suspect]
     Active Substance: ESTROGENS, CONJUGATED
     Dosage: 0.5 G, 2X/WEEK
     Route: 067
     Dates: start: 20221031

REACTIONS (1)
  - Product dose omission issue [Unknown]
